FAERS Safety Report 7729960-8 (Version None)
Quarter: 2011Q3

REPORT INFORMATION
  Report Type: 
  Country: None (occurrence: None)
  Receive Date: 20110906
  Receipt Date: 20110901
  Transmission Date: 20111222
  Serious: Yes (Other)
  Sender: FDA-Public Use
  Company Number: BE-PFIZER INC-2011205805

PATIENT
  Age: 81 Year
  Sex: Male

DRUGS (1)
  1. PANTOPRAZOLE [Suspect]

REACTIONS (1)
  - GLOMERULONEPHRITIS ACUTE [None]
